FAERS Safety Report 13908789 (Version 1)
Quarter: 2017Q3

REPORT INFORMATION
  Report Type: Spontaneous
  Country: NL (occurrence: NL)
  Receive Date: 20170827
  Receipt Date: 20170827
  Transmission Date: 20171127
  Serious: Yes (Other)
  Sender: FDA-Public Use
  Company Number: PHHY2017NL123540

PATIENT
  Sex: Male

DRUGS (1)
  1. ZYKADIA [Suspect]
     Active Substance: CERITINIB
     Indication: NON-SMALL CELL LUNG CANCER
     Dosage: 600 MG, QD
     Route: 065
     Dates: start: 201608, end: 201610

REACTIONS (3)
  - Malignant neoplasm progression [Unknown]
  - Toxicity to various agents [Unknown]
  - Non-small cell lung cancer [Unknown]
